FAERS Safety Report 15368170 (Version 1)
Quarter: 2018Q3

REPORT INFORMATION
  Report Type: Report from Study
  Country: JP (occurrence: JP)
  Receive Date: 20180910
  Receipt Date: 20180910
  Transmission Date: 20181010
  Serious: Yes (Death, Other)
  Sender: FDA-Public Use
  Company Number: JP-SHIRE-JP201823999

PATIENT

DRUGS (9)
  1. 405 (LANTHANUM CARBONATE) [Suspect]
     Active Substance: LANTHANUM CARBONATE
     Indication: HYPERPHOSPHATAEMIA
     Dosage: 750 MG, 1X/DAY:QD
     Route: 048
     Dates: start: 20100514, end: 20100608
  2. FUROSEMIDE. [Concomitant]
     Active Substance: FUROSEMIDE
     Indication: PRODUCT USED FOR UNKNOWN INDICATION
  3. EPOGIN [Concomitant]
     Active Substance: ERYTHROPOIETIN
     Indication: NEPHROGENIC ANAEMIA
  4. KIKLIN [Concomitant]
     Active Substance: BIXALOMER
     Indication: HYPERPHOSPHATAEMIA
  5. IRBESARTAN. [Concomitant]
     Active Substance: IRBESARTAN
     Indication: PRODUCT USED FOR UNKNOWN INDICATION
  6. ALOSITOL [Concomitant]
     Active Substance: ALLOPURINOL
     Indication: PRODUCT USED FOR UNKNOWN INDICATION
  7. 405 (LANTHANUM CARBONATE) [Suspect]
     Active Substance: LANTHANUM CARBONATE
     Dosage: 1500 MG, 1X/DAY:QD
     Route: 048
     Dates: start: 20100609
  8. CALCIUM CARBONATE. [Concomitant]
     Active Substance: CALCIUM CARBONATE
     Indication: HYPERPHOSPHATAEMIA
  9. KALIMATE [Concomitant]
     Active Substance: CALCIUM POLYSTYRENE SULFONATE
     Indication: PRODUCT USED FOR UNKNOWN INDICATION

REACTIONS (5)
  - Shock haemorrhagic [Fatal]
  - Nausea [Fatal]
  - Vomiting [Fatal]
  - Gastric cancer [Fatal]
  - Hyperparathyroidism secondary [Recovering/Resolving]

NARRATIVE: CASE EVENT DATE: 20130305
